FAERS Safety Report 7206754-3 (Version None)
Quarter: 2010Q4

REPORT INFORMATION
  Report Type: 
  Country: None (occurrence: None)
  Receive Date: 20101217
  Receipt Date: 20101202
  Transmission Date: 20110411
  Serious: Yes (Hospitalization)
  Sender: FDA-Public Use
  Company Number: AUR-APL-2010-03093

PATIENT
  Age: 51 Year
  Sex: Female
  Weight: 109.75 kg

DRUGS (7)
  1. ATENOLOL [Suspect]
     Indication: HYPERTENSION
     Dosage: 25MG-BID-ORAL
     Route: 048
     Dates: start: 20101101
  2. LIPITOR [Suspect]
     Indication: BLOOD CHOLESTEROL INCREASED
     Dosage: 40MG-DAILY-ORAL
     Route: 048
     Dates: end: 20100601
  3. TRILIPIX [Concomitant]
  4. FIBRICOR [Concomitant]
  5. BENICAR HCT [Suspect]
     Indication: HYPERTENSION
     Dosage: 20/12.5 MG-ORAL
     Route: 048
     Dates: start: 20080401, end: 20101011
  6. BENAZEPRIL HYDROCHLORIDE [Suspect]
     Indication: HYPERTENSION
     Dosage: ORAL
     Route: 048
     Dates: start: 20100601, end: 20100901
  7. LOVASTATIN [Suspect]
     Indication: BLOOD CHOLESTEROL INCREASED
     Dosage: 40MG-DAILY-ORAL
     Route: 048
     Dates: start: 20100601, end: 20100731

REACTIONS (11)
  - COUGH [None]
  - DYSPNOEA [None]
  - HYPOAESTHESIA ORAL [None]
  - LIP SWELLING [None]
  - MALAISE [None]
  - PARAESTHESIA [None]
  - PARAESTHESIA ORAL [None]
  - SINUS DISORDER [None]
  - SWELLING [None]
  - SWELLING FACE [None]
  - SWOLLEN TONGUE [None]
